FAERS Safety Report 17846837 (Version 1)
Quarter: 2020Q2

REPORT INFORMATION
  Report Type: Spontaneous
  Country: US (occurrence: US)
  Receive Date: 20200601
  Receipt Date: 20200601
  Transmission Date: 20200714
  Serious: Yes (Life-Threatening, Hospitalization)
  Sender: FDA-Public Use
  Company Number: US-MYLANLABS-2020M1052936

PATIENT
  Age: 45 Year
  Sex: Female

DRUGS (3)
  1. PROCHLORPERAZINE. [Suspect]
     Active Substance: PROCHLORPERAZINE
     Indication: NAUSEA
     Route: 065
  2. HYDRALAZINE [Suspect]
     Active Substance: HYDRALAZINE HYDROCHLORIDE
     Indication: HYPERTENSION
     Dosage: UNK, SHE HAD BEEN RECEIVING HYDRALAZINE [INITIAL DOSAGE NOT STATED], ..
     Route: 065
  3. HYDRALAZINE [Suspect]
     Active Substance: HYDRALAZINE HYDROCHLORIDE
     Dosage: 100 MILLIGRAM, TID, 100 MILLIGRAM, TID, SHE HAD BEEN RECEIVING HYDRALAZINE [INITIAL DOSAGE NOT,..
     Route: 065

REACTIONS (12)
  - Glomerulonephritis rapidly progressive [Recovering/Resolving]
  - Fungaemia [Unknown]
  - Anuria [Recovering/Resolving]
  - Sepsis [Unknown]
  - Angioedema [Unknown]
  - Pulmonary alveolar haemorrhage [Recovered/Resolved]
  - Myopathy [Unknown]
  - Gastrointestinal haemorrhage [Unknown]
  - Wound infection [Unknown]
  - Neuropathy peripheral [Unknown]
  - Cardiac arrest [Recovered/Resolved]
  - Anti-neutrophil cytoplasmic antibody positive vasculitis [Recovering/Resolving]
